FAERS Safety Report 4802354-0 (Version None)
Quarter: 2005Q4

REPORT INFORMATION
  Report Type: 
  Country: None (occurrence: None)
  Receive Date: 20051012
  Receipt Date: 20050930
  Transmission Date: 20060501
  Serious: Yes (Disabling)
  Sender: FDA-Public Use
  Company Number: GBWYE995621SEP05

PATIENT
  Age: 5 Year
  Sex: Female

DRUGS (3)
  1. EFFEXOR [Suspect]
     Indication: DEPRESSION
     Dosage: 150 MG
     Route: 048
     Dates: start: 20041206, end: 20050223
  2. CITALOPRAM [Concomitant]
  3. PROGYNOVA (ESTRADIOL VALERATE) [Concomitant]

REACTIONS (1)
  - TINNITUS [None]
